FAERS Safety Report 15171294 (Version 2)
Quarter: 2018Q3

REPORT INFORMATION
  Report Type: Spontaneous
  Country: TR (occurrence: TR)
  Receive Date: 20180720
  Receipt Date: 20180727
  Transmission Date: 20181010
  Serious: Yes (Other)
  Sender: FDA-Public Use
  Company Number: TR-GLAXOSMITHKLINE-TR2018GSK124809

PATIENT
  Age: 26 Year
  Sex: Female

DRUGS (3)
  1. CEFTRIAXONE. [Suspect]
     Active Substance: CEFTRIAXONE
     Indication: HERPES SIMPLEX ENCEPHALITIS
     Dosage: UNK
  2. ACYCLOVIR. [Suspect]
     Active Substance: ACYCLOVIR
     Indication: PRODUCT USED FOR UNKNOWN INDICATION
     Dosage: UNK
  3. LEVETIRACETAM. [Suspect]
     Active Substance: LEVETIRACETAM
     Indication: PRODUCT USED FOR UNKNOWN INDICATION
     Dosage: UNK

REACTIONS (7)
  - Kluver-Bucy syndrome [Unknown]
  - Abnormal behaviour [Unknown]
  - Generalised tonic-clonic seizure [Unknown]
  - Restlessness [Unknown]
  - Hypersexuality [Unknown]
  - Mood altered [Unknown]
  - Hyperphagia [Unknown]
